FAERS Safety Report 5572321-0 (Version None)
Quarter: 2007Q4

REPORT INFORMATION
  Report Type: 
  Country: None (occurrence: None)
  Receive Date: 20071219
  Receipt Date: 20071211
  Transmission Date: 20080405
  Serious: Yes (Death, Hospitalization)
  Sender: FDA-Public Use
  Company Number: THQ2007A01157

PATIENT
  Age: 65 Year
  Sex: Male

DRUGS (10)
  1. LEUPROLIDE ACETATE [Suspect]
     Indication: PROSTATE CANCER
     Dosage: 22.5 MG (22.5 MG, 1 IN 1 3 M) INJECTION
     Dates: start: 20060906, end: 20070904
  2. WARFARIN SODIUM [Concomitant]
  3. FUROSEMIDE [Concomitant]
  4. POTASSIUM CHLORIDE [Concomitant]
  5. CITALOPRAM HYDROBROMIDE [Concomitant]
  6. ACETYLSALICYLIC ACID SRT [Concomitant]
  7. CAPTOPRIL [Concomitant]
  8. ATORVASTATIN CALCIUM [Concomitant]
  9. AMINOPHYLLINE [Concomitant]
  10. CHLORPROMAZINE [Concomitant]

REACTIONS (3)
  - MYOCARDIAL ISCHAEMIA [None]
  - PANCREATITIS ACUTE [None]
  - SUDDEN DEATH [None]
